FAERS Safety Report 5736466-4 (Version None)
Quarter: 2008Q2

REPORT INFORMATION
  Report Type: 
  Country: None (occurrence: None)
  Receive Date: 20080508
  Receipt Date: 20080221
  Transmission Date: 20081010
  Serious: Yes (Hospitalization)
  Sender: FDA-Public Use
  Company Number: 865#9#2008-00004

PATIENT
  Age: 60 Year
  Sex: Female

DRUGS (18)
  1. ROTIGOTINE (DOSE UNKNOWN), PATCH (SILICONE) (ROTIGOTINE) [Suspect]
     Indication: PARKINSON'S DISEASE
     Dosage: SEE IMAGE
     Route: 062
     Dates: start: 20070319, end: 20070325
  2. ROTIGOTINE (DOSE UNKNOWN), PATCH (SILICONE) (ROTIGOTINE) [Suspect]
     Indication: PARKINSON'S DISEASE
     Dosage: SEE IMAGE
     Route: 062
     Dates: start: 20070326, end: 20070401
  3. ROTIGOTINE (DOSE UNKNOWN), PATCH (SILICONE) (ROTIGOTINE) [Suspect]
     Indication: PARKINSON'S DISEASE
     Dosage: SEE IMAGE
     Route: 062
     Dates: start: 20070402, end: 20070408
  4. ROTIGOTINE (DOSE UNKNOWN), PATCH (SILICONE) (ROTIGOTINE) [Suspect]
     Indication: PARKINSON'S DISEASE
     Dosage: SEE IMAGE
     Route: 062
     Dates: start: 20070409, end: 20070415
  5. ROTIGOTINE (DOSE UNKNOWN), PATCH (SILICONE) (ROTIGOTINE) [Suspect]
     Indication: PARKINSON'S DISEASE
     Dosage: SEE IMAGE
     Route: 062
     Dates: start: 20070416, end: 20070422
  6. ROTIGOTINE (DOSE UNKNOWN), PATCH (SILICONE) (ROTIGOTINE) [Suspect]
     Indication: PARKINSON'S DISEASE
     Dosage: SEE IMAGE
     Route: 062
     Dates: start: 20070423, end: 20070930
  7. ROTIGOTINE (DOSE UNKNOWN), PATCH (SILICONE) (ROTIGOTINE) [Suspect]
     Indication: PARKINSON'S DISEASE
     Dosage: SEE IMAGE
     Route: 062
     Dates: start: 20071001, end: 20080120
  8. ROTIGOTINE (DOSE UNKNOWN), PATCH (SILICONE) (ROTIGOTINE) [Suspect]
     Indication: PARKINSON'S DISEASE
     Dosage: SEE IMAGE
     Route: 062
     Dates: start: 20080121, end: 20080121
  9. ROTIGOTINE (DOSE UNKNOWN), PATCH (SILICONE) (ROTIGOTINE) [Suspect]
     Indication: PARKINSON'S DISEASE
     Dosage: SEE IMAGE
     Route: 062
     Dates: start: 20080128, end: 20080203
  10. ROTIGOTINE (DOSE UNKNOWN), PATCH (SILICONE) (ROTIGOTINE) [Suspect]
     Indication: PARKINSON'S DISEASE
     Dosage: SEE IMAGE
     Route: 062
     Dates: start: 20080204, end: 20080217
  11. LEVODOPA, CARBIDOPA (CARBIDOPA, LEVODOPA) [Suspect]
     Indication: PARKINSON'S DISEASE
     Dosage: 300 MG ORAL
     Route: 048
     Dates: start: 20061023
  12. SELEGILINE HYDROCHLORIDE [Suspect]
     Indication: PARKINSON'S DISEASE
     Dosage: 2.5 MG ORAL
     Route: 048
     Dates: start: 20061010, end: 20080121
  13. REBAMIPIDE (REBAMIPIDE) [Concomitant]
  14. AMLODIPINE BESYLATE [Concomitant]
  15. ATORVASTATIN CALCIUM HYDRATE (ATORVASTATIN CALCIUM) [Concomitant]
  16. HERBAL EXTRACT NOS (HERBAL EXTRACTS NOS) [Concomitant]
  17. QUETIAPINE FUMARATE [Concomitant]
  18. ARIPIPRAZOLE [Concomitant]

REACTIONS (2)
  - DELUSION [None]
  - HALLUCINATION [None]
